FAERS Safety Report 9162670 (Version 2)
Quarter: 2013Q2

REPORT INFORMATION
  Report Type: Spontaneous
  Country: US (occurrence: US)
  Receive Date: 20130314
  Receipt Date: 20130410
  Transmission Date: 20140414
  Serious: Yes (Hospitalization, Other)
  Sender: FDA-Public Use
  Company Number: US-SANOFI-AVENTIS-2013SA024873

PATIENT
  Age: 62 Year
  Sex: Female
  Weight: 95.25 kg

DRUGS (7)
  1. AMBIEN CR [Suspect]
     Indication: SLEEP DISORDER
     Route: 048
     Dates: start: 2006, end: 201209
  2. PERCOCET [Concomitant]
     Indication: PAIN
  3. ALL OTHER THERAPEUTIC PRODUCTS [Concomitant]
  4. BISOPROLOL [Concomitant]
  5. SPIRONOLACTONE [Concomitant]
  6. NORTRIPTYLINE [Concomitant]
  7. SERTRALINE [Concomitant]

REACTIONS (8)
  - Hallucination, auditory [Recovered/Resolved]
  - Panic attack [Recovered/Resolved]
  - Feeling abnormal [Recovered/Resolved]
  - Stress [Recovered/Resolved]
  - Hallucination, visual [Recovered/Resolved]
  - Arthritis [Unknown]
  - Back pain [Unknown]
  - Blood pressure increased [Unknown]
